FAERS Safety Report 4454530-7 (Version None)
Quarter: 2004Q3

REPORT INFORMATION
  Report Type: 
  Country: None (occurrence: None)
  Receive Date: 20040917
  Receipt Date: 20040917
  Transmission Date: 20050211
  Serious: No
  Sender: FDA-Public Use
  Company Number: None

PATIENT
  Age: 39 Year
  Sex: Male
  Weight: 73.4827 kg

DRUGS (2)
  1. CIPRO [Suspect]
     Indication: PROSTATITIS
     Dosage: ONE TAB BID ORAL
     Route: 048
     Dates: start: 20040830, end: 20040905
  2. LEVAQUIN [Suspect]
     Dosage: ONE TAB DAILY ORAL
     Route: 048
     Dates: start: 20040907, end: 20040909

REACTIONS (6)
  - ARTHRALGIA [None]
  - ERYTHEMA [None]
  - INFLAMMATION [None]
  - JOINT SWELLING [None]
  - OEDEMA PERIPHERAL [None]
  - PAIN EXACERBATED [None]
